FAERS Safety Report 8799146 (Version 1)
Quarter: 2012Q4

REPORT INFORMATION
  Report Type: 
  Country: US (occurrence: US)
  Receive Date: 20120920
  Receipt Date: 20120920
  Transmission Date: 20130627
  Serious: No
  Sender: FDA-Public Use
  Company Number: US-ASTRAZENECA-2012SE13305

PATIENT
  Age: 51 Year
  Sex: Female
  Weight: 77.1 kg

DRUGS (13)
  1. LISINOPRIL [Suspect]
     Indication: HYPERTENSION
     Route: 048
  2. TOPROL XL [Suspect]
     Indication: HYPERTENSION
     Route: 048
  3. SEROQUEL [Suspect]
     Indication: MOOD SWINGS
     Route: 048
  4. SEROQUEL [Suspect]
     Indication: MIGRAINE
     Route: 048
  5. SEROQUEL [Suspect]
     Indication: MOOD SWINGS
     Route: 048
  6. SEROQUEL [Suspect]
     Indication: MIGRAINE
     Route: 048
  7. SEROQUEL [Suspect]
     Indication: MOOD SWINGS
     Route: 048
  8. SEROQUEL [Suspect]
     Indication: MIGRAINE
     Route: 048
  9. ZOMIG [Suspect]
     Indication: MIGRAINE
     Route: 048
  10. AMITRYPTILINE [Concomitant]
     Indication: MIGRAINE
  11. CELEBREX [Concomitant]
     Indication: INTERVERTEBRAL DISC DEGENERATION
  12. CALCIUM [Concomitant]
  13. MULTIPLE VITAMINS [Concomitant]

REACTIONS (9)
  - Somnolence [Unknown]
  - Neurological symptom [Unknown]
  - Muscle twitching [Unknown]
  - Feeling abnormal [Unknown]
  - Agitation [Unknown]
  - Insomnia [Unknown]
  - Feeling abnormal [Unknown]
  - Off label use [Unknown]
  - Drug dose omission [Unknown]
